FAERS Safety Report 8145987-9 (Version None)
Quarter: 2012Q1

REPORT INFORMATION
  Report Type: 
  Country: None (occurrence: None)
  Receive Date: 20120217
  Receipt Date: 20110707
  Transmission Date: 20120608
  Serious: No
  Sender: FDA-Public Use
  Company Number: US-ABBOTT-11P-163-0836949-00

PATIENT
  Weight: 108.96 kg

DRUGS (2)
  1. SIMCOR [Suspect]
     Indication: PRODUCT USED FOR UNKNOWN INDICATION
     Dosage: 500/20 MG
     Dates: start: 20110601
  2. NORVASC [Concomitant]
     Indication: PRODUCT USED FOR UNKNOWN INDICATION

REACTIONS (6)
  - DRY SKIN [None]
  - FLUSHING [None]
  - ERYTHEMA [None]
  - PAIN OF SKIN [None]
  - SUNBURN [None]
  - PARAESTHESIA [None]
